FAERS Safety Report 9039541 (Version 1)
Quarter: 2013Q2

REPORT INFORMATION
  Report Type: Spontaneous
  Country: US (occurrence: None)
  Receive Date: 20130123
  Receipt Date: 20130123
  Transmission Date: 20140414
  Serious: Yes (Hospitalization)
  Sender: FDA-Public Use
  Company Number: None

PATIENT
  Age: 50 Year
  Sex: Female
  Weight: 93.9 kg

DRUGS (3)
  1. RITUXAN [Suspect]
     Indication: RHEUMATOID ARTHRITIS
     Dosage: 1000MG DAY 1.15 EVERY 4 MONTHS
     Dates: start: 20120420, end: 20121227
  2. ORENCIA [Concomitant]
  3. METHOTREXATE [Concomitant]

REACTIONS (1)
  - Herpes simplex meningitis [None]
